FAERS Safety Report 12147526 (Version 1)
Quarter: 2016Q1

REPORT INFORMATION
  Report Type: Spontaneous
  Country: UY (occurrence: UY)
  Receive Date: 20160304
  Receipt Date: 20160304
  Transmission Date: 20160526
  Serious: Yes (Other)
  Sender: FDA-Public Use
  Company Number: UY-ELI_LILLY_AND_COMPANY-UY201603000327

PATIENT
  Age: 38 Year
  Sex: Female

DRUGS (1)
  1. HUMULIN N [Suspect]
     Active Substance: INSULIN HUMAN
     Indication: GESTATIONAL DIABETES
     Dosage: UNK UNK, UNKNOWN
     Route: 065
     Dates: start: 20120727, end: 20120831

REACTIONS (3)
  - Maternal exposure during pregnancy [Recovered/Resolved]
  - Protein urine present [Unknown]
  - Hypertension [Unknown]

NARRATIVE: CASE EVENT DATE: 20120727
